FAERS Safety Report 18320791 (Version 2)
Quarter: 2020Q4

REPORT INFORMATION
  Report Type: Spontaneous
  Country: CO (occurrence: CO)
  Receive Date: 20200928
  Receipt Date: 20201117
  Transmission Date: 20210113
  Serious: Yes (Other)
  Sender: FDA-Public Use
  Company Number: CO-AMGEN-COLSP2020154354

PATIENT
  Age: 73 Year
  Sex: Female
  Weight: 41 kg

DRUGS (1)
  1. MVASI [Suspect]
     Active Substance: BEVACIZUMAB-AWWB
     Indication: SEROUS CYSTADENOCARCINOMA OVARY
     Dosage: 600 MILLIGRAM, QD
     Route: 042
     Dates: start: 20200513

REACTIONS (3)
  - Blood cholesterol increased [Recovering/Resolving]
  - Product use in unapproved indication [Unknown]
  - Blood triglycerides increased [Recovering/Resolving]

NARRATIVE: CASE EVENT DATE: 20200729
